FAERS Safety Report 4438811-9 (Version None)
Quarter: 2004Q3

REPORT INFORMATION
  Report Type: 
  Country: None (occurrence: None)
  Receive Date: 20040830
  Receipt Date: 20040819
  Transmission Date: 20050211
  Serious: Yes (Disabling)
  Sender: FDA-Public Use
  Company Number: HQWYE482823AUG04

PATIENT
  Age: 44 Year
  Sex: Female

DRUGS (29)
  1. RAPAMUNE [Suspect]
     Indication: RENAL AND PANCREAS TRANSPLANT
     Dosage: DOSE VARIED FROM 1-3 MG/DAY, ORAL
     Route: 048
     Dates: start: 19991010
  2. RAPAMUNE [Suspect]
     Indication: RENAL AND PANCREAS TRANSPLANT
     Dosage: SEE IMAGE
     Route: 048
     Dates: end: 20030901
  3. RAPAMUNE [Suspect]
     Indication: RENAL AND PANCREAS TRANSPLANT
     Dosage: SEE IMAGE
     Route: 048
     Dates: end: 20040813
  4. RAPAMUNE [Suspect]
     Indication: RENAL AND PANCREAS TRANSPLANT
     Dosage: SEE IMAGE
     Route: 048
     Dates: start: 20031017
  5. CYCLOSPORINE [Concomitant]
  6. PREDNISONE [Concomitant]
  7. PROGRAF [Concomitant]
  8. VICODIN [Concomitant]
  9. OXYCONTIN [Concomitant]
  10. OXYCODONE (OXYCODONE) [Concomitant]
  11. ATIVAN [Concomitant]
  12. ZOLOFT [Concomitant]
  13. RITALIN [Concomitant]
  14. SYNTHROID [Concomitant]
  15. XALATAN [Concomitant]
  16. ALPHAGAN [Concomitant]
  17. AZOPT [Concomitant]
  18. VIROPTIC (TRIFLURIDINE) [Concomitant]
  19. PRED-FORTE (PREDNISOLONE ACETATE) [Concomitant]
  20. BACTRIM (SLUFAMETHOXAZOLE/TRIMETHOPRIM) [Concomitant]
  21. NEURONTIN [Concomitant]
  22. CLIMARA [Concomitant]
  23. MIACALCIN [Concomitant]
  24. PRAVACHOL [Concomitant]
  25. ASPIRIN [Concomitant]
  26. LAMOTIL (ATROPINE SULFATE/DIPHENOXYLATE HYDROCHLORIDE) [Concomitant]
  27. TOPROL-XL [Concomitant]
  28. DIOVAN [Concomitant]
  29. LASIX [Concomitant]

REACTIONS (9)
  - ASTHENIA [None]
  - DIARRHOEA [None]
  - FOOT AMPUTATION [None]
  - LOWER LIMB FRACTURE [None]
  - LYMPHOEDEMA [None]
  - NEUROPATHY [None]
  - NEUTROPENIA [None]
  - PHLEBITIS [None]
  - WEIGHT INCREASED [None]
